FAERS Safety Report 5128794-0 (Version None)
Quarter: 2006Q4

REPORT INFORMATION
  Report Type: 
  Country: None (occurrence: None)
  Receive Date: 20061017
  Receipt Date: 20060707
  Transmission Date: 20070319
  Serious: Yes (Hospitalization, Other)
  Sender: FDA-Public Use
  Company Number: DE-SANOFI-SYNTHELABO-A01200605329

PATIENT
  Sex: Male

DRUGS (2)
  1. SPASMOLYT [Concomitant]
  2. ELIGARD [Suspect]
     Indication: PROSTATE CANCER
     Route: 058
     Dates: start: 20060515, end: 20060515

REACTIONS (3)
  - ABDOMINAL PAIN UPPER [None]
  - LEUKOCYTOCLASTIC VASCULITIS [None]
  - RASH [None]
